FAERS Safety Report 12777002 (Version 4)
Quarter: 2017Q2

REPORT INFORMATION
  Report Type: Spontaneous
  Country: US (occurrence: US)
  Receive Date: 20160923
  Receipt Date: 20170511
  Transmission Date: 20170830
  Serious: No
  Sender: FDA-Public Use
  Company Number: US-ASTRAZENECA-2016SE98036

PATIENT
  Age: 1082 Month
  Sex: Female
  Weight: 70.3 kg

DRUGS (2)
  1. DULERA [Concomitant]
     Active Substance: FORMOTEROL FUMARATE DIHYDRATE\MOMETASONE FUROATE
     Indication: CHRONIC OBSTRUCTIVE PULMONARY DISEASE
     Route: 055
     Dates: start: 201605
  2. TUDORZA PRESSAIR [Suspect]
     Active Substance: ACLIDINIUM BROMIDE
     Indication: CHRONIC OBSTRUCTIVE PULMONARY DISEASE
     Route: 055
     Dates: start: 2016

REACTIONS (11)
  - Drug use disorder [Unknown]
  - Dyspnoea [Unknown]
  - General physical condition abnormal [Unknown]
  - Incorrect dose administered [Unknown]
  - Device malfunction [Unknown]
  - Drug dose omission [Unknown]
  - Intentional product misuse [Unknown]
  - Cerebral disorder [Unknown]
  - Weight increased [Unknown]
  - Body height decreased [Unknown]
  - Fatigue [Unknown]

NARRATIVE: CASE EVENT DATE: 201609
